FAERS Safety Report 5342302-0 (Version None)
Quarter: 2007Q2

REPORT INFORMATION
  Report Type: 
  Country: None (occurrence: None)
  Receive Date: 20070601
  Receipt Date: 20070529
  Transmission Date: 20071010
  Serious: Yes (Life-Threatening, Other)
  Sender: FDA-Public Use
  Company Number: JP-SANOFI-SYNTHELABO-F01200502637

PATIENT
  Sex: Male
  Weight: 51 kg

DRUGS (4)
  1. SEROTONE [Suspect]
     Indication: PROPHYLAXIS OF NAUSEA AND VOMITING
     Route: 041
     Dates: start: 20050729, end: 20050729
  2. ISOVORIN [Suspect]
     Route: 042
     Dates: start: 20050729, end: 20050730
  3. FLUOROURACIL [Suspect]
     Dosage: 600 MG/M2 IV BOLUS AND 900 MG/M2 IV 22 HOURS CONTINUOUS INFUSION, Q2W
     Route: 042
     Dates: start: 20050729, end: 20050730
  4. OXALIPLATIN [Suspect]
     Indication: COLON CANCER
     Route: 042
     Dates: start: 20050729, end: 20050729

REACTIONS (3)
  - COMA [None]
  - LEUKOPENIA [None]
  - NEUTROPENIA [None]
